FAERS Safety Report 25223141 (Version 1)
Quarter: 2025Q2

REPORT INFORMATION
  Report Type: Spontaneous
  Country: US (occurrence: US)
  Receive Date: 20250422
  Receipt Date: 20250422
  Transmission Date: 20250717
  Serious: Yes (Other)
  Sender: SANOFI AVENTIS
  Company Number: US-SA-2025SA092300

PATIENT
  Age: 53 Year
  Sex: Male

DRUGS (1)
  1. LANTUS SOLOSTAR [Suspect]
     Active Substance: INSULIN GLARGINE
     Dosage: 28 IU, QD
     Route: 058
     Dates: start: 20250307

REACTIONS (2)
  - Diabetic ketoacidosis [Unknown]
  - Blood glucose increased [Recovered/Resolved]

NARRATIVE: CASE EVENT DATE: 20250301
